FAERS Safety Report 20435462 (Version 1)
Quarter: 2022Q1

REPORT INFORMATION
  Report Type: Spontaneous
  Country: US (occurrence: None)
  Receive Date: 20220206
  Receipt Date: 20220206
  Transmission Date: 20220423
  Serious: No
  Sender: FDA-Public Use
  Company Number: 2022A035312

PATIENT
  Sex: Female
  Weight: 79.8 kg

DRUGS (3)
  1. BUDESONIDE\FORMOTEROL\GLYCOPYRRONIUM [Suspect]
     Active Substance: BUDESONIDE\FORMOTEROL\GLYCOPYRRONIUM
     Indication: Asthma-chronic obstructive pulmonary disease overlap syndrome
     Dosage: 160/9/4.8 MCG INHALER FOR ABOUT 3 MONTHS
     Route: 055
     Dates: start: 20010929, end: 20011230
  2. BUDESONIDE\FORMOTEROL\GLYCOPYRRONIUM [Suspect]
     Active Substance: BUDESONIDE\FORMOTEROL\GLYCOPYRRONIUM
     Indication: Asthma-chronic obstructive pulmonary disease overlap syndrome
     Route: 055
     Dates: start: 20210929, end: 2022
  3. SYMBICORT [Suspect]
     Active Substance: BUDESONIDE\FORMOTEROL FUMARATE DIHYDRATE
     Indication: Asthma
     Dosage: 160/4.5 MCG, 2 PUFFS 2 DAILY
     Route: 055
     Dates: start: 2017

REACTIONS (2)
  - Bladder disorder [Recovered/Resolved]
  - Eye disorder [Recovered/Resolved]
